FAERS Safety Report 15774910 (Version 1)
Quarter: 2018Q4

REPORT INFORMATION
  Report Type: Report from Study
  Country: None (occurrence: BR)
  Receive Date: 20181230
  Receipt Date: 20181230
  Transmission Date: 20190205
  Serious: Yes (Other)
  Sender: FDA-Public Use
  Company Number: BR-ABBVIE-18K-020-2451154-00

PATIENT
  Sex: Female
  Weight: 53 kg

DRUGS (5)
  1. PREDSIM [Concomitant]
     Active Substance: PREDNISOLONE
     Indication: ARTHRITIS
  2. HUMIRA [Suspect]
     Active Substance: ADALIMUMAB
     Indication: RHEUMATOID ARTHRITIS
     Route: 058
     Dates: start: 20140807
  3. VITAMIN D7000 [Concomitant]
     Indication: ARTHRITIS
  4. MELOXICAM. [Concomitant]
     Active Substance: MELOXICAM
     Indication: ARTHRITIS
  5. METHOTREXATE. [Concomitant]
     Active Substance: METHOTREXATE
     Indication: ARTHRITIS

REACTIONS (10)
  - Pharyngitis [Recovered/Resolved]
  - Rhinitis [Unknown]
  - Inappropriate schedule of product administration [Unknown]
  - Onychomycosis [Not Recovered/Not Resolved]
  - Osteoarthritis [Unknown]
  - Pain in extremity [Unknown]
  - Aphonia [Recovered/Resolved]
  - Pharyngitis [Recovered/Resolved]
  - Drug effect decreased [Unknown]
  - Onychomycosis [Recovered/Resolved]

NARRATIVE: CASE EVENT DATE: 2017
